FAERS Safety Report 5326535-5 (Version None)
Quarter: 2007Q2

REPORT INFORMATION
  Report Type: 
  Country: None (occurrence: None)
  Receive Date: 20070510
  Receipt Date: 20070502
  Transmission Date: 20071010
  Serious: Yes (Hospitalization, Other)
  Sender: FDA-Public Use
  Company Number: 2007SP008480

PATIENT
  Age: 50 Year
  Sex: Male
  Weight: 121.564 kg

DRUGS (2)
  1. PEG-INTRON [Suspect]
     Indication: HEPATITIS C
     Dates: start: 20070316, end: 20070401
  2. REBETOL [Suspect]
     Indication: HEPATITIS C
     Dosage: PO
     Route: 048
     Dates: start: 20070316, end: 20070401

REACTIONS (4)
  - ABDOMINAL DISTENSION [None]
  - LOCALISED INTRAABDOMINAL FLUID COLLECTION [None]
  - LYMPHADENOPATHY [None]
  - WEIGHT INCREASED [None]
